FAERS Safety Report 12326578 (Version 2)
Quarter: 2016Q2

REPORT INFORMATION
  Report Type: Spontaneous
  Country: FR (occurrence: FR)
  Receive Date: 20160503
  Receipt Date: 20160511
  Transmission Date: 20160815
  Serious: Yes (Other)
  Sender: FDA-Public Use
  Company Number: FR-ROCHE-1749504

PATIENT
  Age: 59 Year
  Sex: Female
  Weight: 88 kg

DRUGS (7)
  1. ROACTEMRA [Suspect]
     Active Substance: TOCILIZUMAB
     Indication: RHEUMATOID ARTHRITIS
     Route: 042
     Dates: start: 201207, end: 201506
  2. ROACTEMRA [Suspect]
     Active Substance: TOCILIZUMAB
     Indication: RHEUMATOID ARTHRITIS
     Route: 058
     Dates: start: 201506
  3. ZYMAD [Concomitant]
     Active Substance: CHOLECALCIFEROL
     Route: 048
  4. ACTONEL [Suspect]
     Active Substance: RISEDRONATE SODIUM
     Indication: OSTEOPOROSIS
     Dosage: DAY 1 AND DAY 2 OF EACH MONTH STARTED IN FEB/2016
     Route: 048
     Dates: start: 20160201, end: 20160202
  5. SPECIAFOLDINE [Concomitant]
     Active Substance: FOLIC ACID
     Route: 048
  6. BIPROFENID [Suspect]
     Active Substance: KETOPROFEN
     Indication: PAIN
     Route: 048
     Dates: start: 201602, end: 201602
  7. METHOTREXATE [Suspect]
     Active Substance: METHOTREXATE
     Indication: RHEUMATOID ARTHRITIS
     Route: 048
     Dates: start: 2012

REACTIONS (1)
  - Gastric ulcer [Unknown]

NARRATIVE: CASE EVENT DATE: 201602
